FAERS Safety Report 19924560 (Version 1)
Quarter: 2021Q4

REPORT INFORMATION
  Report Type: Spontaneous
  Country: US (occurrence: US)
  Receive Date: 20211006
  Receipt Date: 20211006
  Transmission Date: 20220303
  Serious: No
  Sender: FDA-Public Use
  Company Number: US-PERRIGO-20US014093

PATIENT
  Age: 62 Year
  Sex: Male
  Weight: 86.17 kg

DRUGS (2)
  1. NICOTINE POLACRILEX [Suspect]
     Active Substance: NICOTINE
     Indication: Accidental exposure to product
     Dosage: 4 MG, 20 TIMES TOTAL
     Route: 002
     Dates: start: 202008, end: 20200925
  2. NICOTINE [Concomitant]
     Active Substance: NICOTINE
     Indication: Nicotine dependence
     Dosage: 2 MG, UP TO 15 TIMES DAILY
     Route: 002
     Dates: start: 202008, end: 20200925

REACTIONS (2)
  - Headache [Recovered/Resolved]
  - Accidental exposure to product [Recovered/Resolved]

NARRATIVE: CASE EVENT DATE: 20200801
